FAERS Safety Report 22084476 (Version 2)
Quarter: 2023Q1

REPORT INFORMATION
  Report Type: Spontaneous
  Country: CZ (occurrence: CZ)
  Receive Date: 20230310
  Receipt Date: 20230321
  Transmission Date: 20230417
  Serious: Yes (Hospitalization)
  Sender: FDA-Public Use
  Company Number: CZ-Accord-301018

PATIENT
  Age: 75 Year
  Sex: Male
  Weight: 80 kg

DRUGS (18)
  1. OXALIPLATIN [Suspect]
     Active Substance: OXALIPLATIN
     Indication: Product used for unknown indication
     Dosage: 50 MILLIGRAM/SQ. METER, SINGLE
     Route: 065
     Dates: start: 20220805, end: 20220805
  2. OXALIPLATIN [Suspect]
     Active Substance: OXALIPLATIN
     Dosage: 100 MILLIGRAM/SQ. METER, SINGLE
     Route: 065
     Dates: start: 20220719, end: 20220719
  3. OXALIPLATIN [Suspect]
     Active Substance: OXALIPLATIN
     Dosage: 100 MILLIGRAM/SQ. METER, 1Q2W
     Route: 065
     Dates: start: 20220823, end: 20221101
  4. EPCORITAMAB [Suspect]
     Active Substance: EPCORITAMAB
     Indication: Product used for unknown indication
     Dosage: PRIMING DOSE: 0.16 MILLIGRAM; SINGLE
     Route: 058
     Dates: start: 20220719, end: 20220719
  5. EPCORITAMAB [Suspect]
     Active Substance: EPCORITAMAB
     Dosage: FULL DOSE: 48 MILLIGRAM; WEEKLY
     Route: 058
     Dates: start: 20221101
  6. EPCORITAMAB [Suspect]
     Active Substance: EPCORITAMAB
     Dosage: INTERMEDIATE DOSE: 0.8 MILLIGRAM; SINGLE
     Route: 058
     Dates: start: 20220812, end: 20220812
  7. EPCORITAMAB [Suspect]
     Active Substance: EPCORITAMAB
     Dosage: FULL DOSE: 48 MILLIGRAM, WEEKLY
     Route: 058
     Dates: start: 20220823, end: 20221018
  8. EPCORITAMAB [Suspect]
     Active Substance: EPCORITAMAB
     Dosage: RE-PRIMING DOSE: 0.16 MILLIGRAM; SINGLE
     Route: 058
     Dates: start: 20220805, end: 20220805
  9. GEMCITABINE [Suspect]
     Active Substance: GEMCITABINE
     Indication: Product used for unknown indication
     Dosage: 1000 MILLIGRAM/SQ. METER, SINGLE
     Route: 065
     Dates: start: 20220805, end: 20221101
  10. GEMCITABINE [Suspect]
     Active Substance: GEMCITABINE
     Dosage: 1000 MILLIGRAM/SQ. METER, SINGLE
     Route: 065
     Dates: start: 20220719, end: 20220719
  11. ZOLPIDEM TARTRATE [Concomitant]
     Active Substance: ZOLPIDEM TARTRATE
     Dosage: UNK
     Route: 065
     Dates: start: 2022
  12. PREDNISONE [Concomitant]
     Active Substance: PREDNISONE
     Dosage: 100 MILLIGRAM, QD, 100 MG, ONCE
     Route: 048
     Dates: start: 20221018, end: 20221018
  13. NADROPARIN CALCIUM [Concomitant]
     Active Substance: NADROPARIN CALCIUM
     Dosage: UNK
     Route: 065
     Dates: start: 202207
  14. BISULEPIN [Concomitant]
     Active Substance: BISULEPIN
     Dosage: 1 MILLIGRAM
     Route: 065
     Dates: start: 20221018, end: 20221018
  15. ACETAMINOPHEN [Concomitant]
     Active Substance: ACETAMINOPHEN
     Dosage: 1000 MILLIGRAM
     Route: 048
     Dates: start: 20221018, end: 20221018
  16. FILGRASTIM [Concomitant]
     Active Substance: FILGRASTIM
     Dosage: UNK
     Route: 065
     Dates: start: 20220921
  17. SULFAMETHOXAZOLE\TRIMETHOPRIM [Concomitant]
     Active Substance: SULFAMETHOXAZOLE\TRIMETHOPRIM
     Dosage: UNK
     Route: 065
     Dates: start: 20220719
  18. HERPESINE [Concomitant]
     Dosage: UNK
     Route: 065
     Dates: start: 2014

REACTIONS (1)
  - Atrioventricular block complete [Recovered/Resolved]

NARRATIVE: CASE EVENT DATE: 20221031
